FAERS Safety Report 11883396 (Version 1)
Quarter: 2015Q4

REPORT INFORMATION
  Report Type: Spontaneous
  Country: GR (occurrence: GR)
  Receive Date: 20151231
  Receipt Date: 20151231
  Transmission Date: 20160305
  Serious: Yes (Other)
  Sender: FDA-Public Use
  Company Number: GR-WATSON-2015-21072

PATIENT
  Age: 55 Year
  Sex: Female

DRUGS (1)
  1. PREDNISOLONE (UNKNOWN) [Suspect]
     Active Substance: PREDNISOLONE
     Indication: PEMPHIGUS
     Dosage: 50 MG DAILY, TAPERED TO 5 MG DAILY
     Route: 065

REACTIONS (3)
  - Muscular weakness [Unknown]
  - Hyperlipidaemia [Unknown]
  - Osteoporosis [Unknown]
